FAERS Safety Report 17625506 (Version 7)
Quarter: 2021Q2

REPORT INFORMATION
  Report Type: Spontaneous
  Country: US (occurrence: US)
  Receive Date: 20200404
  Receipt Date: 20210405
  Transmission Date: 20210716
  Serious: Yes (Other)
  Sender: FDA-Public Use
  Company Number: US-INSMED, INC.-US-INS-20-00448

PATIENT
  Age: 81 Year
  Sex: Male

DRUGS (1)
  1. ARIKAYCE [Suspect]
     Active Substance: AMIKACIN
     Indication: PRODUCT USED FOR UNKNOWN INDICATION
     Route: 055

REACTIONS (12)
  - Urinary tract infection [Unknown]
  - Feeling hot [Not Recovered/Not Resolved]
  - Flushing [Not Recovered/Not Resolved]
  - Urinary tract disorder [Unknown]
  - Illness [Unknown]
  - Product dose omission issue [Unknown]
  - Tooth discolouration [Unknown]
  - Surgery [Unknown]
  - Neurosurgery [Unknown]
  - Night sweats [Not Recovered/Not Resolved]
  - Sputum discoloured [Unknown]
  - Productive cough [Unknown]

NARRATIVE: CASE EVENT DATE: 202002
